FAERS Safety Report 5338919-X (Version None)
Quarter: 2007Q2

REPORT INFORMATION
  Report Type: 
  Country: None (occurrence: None)
  Receive Date: 20070404
  Receipt Date: 20060508
  Transmission Date: 20071010
  Serious: Yes (Other)
  Sender: FDA-Public Use
  Company Number: HQWYE283211MAY06

PATIENT
  Age: 39 Year
  Sex: Male
  Weight: 90.8 kg

DRUGS (1)
  1. ALAVERT [Suspect]
     Indication: HYPERSENSITIVITY
     Dosage: 1 TABLET AS NEEDED, ORAL
     Route: 048
     Dates: start: 20060429, end: 20060506

REACTIONS (2)
  - DIZZINESS [None]
  - HEART RATE INCREASED [None]
